FAERS Safety Report 10283825 (Version 2)
Quarter: 2014Q3

REPORT INFORMATION
  Report Type: Spontaneous
  Country: US (occurrence: US)
  Receive Date: 20140708
  Receipt Date: 20140805
  Transmission Date: 20150326
  Serious: Yes (Hospitalization, Other)
  Sender: FDA-Public Use
  Company Number: US-ASTELLAS-2014US007953

PATIENT
  Age: 67 Year
  Sex: Male

DRUGS (1)
  1. XTANDI [Suspect]
     Active Substance: ENZALUTAMIDE
     Indication: PROSTATE CANCER
     Route: 048
     Dates: start: 20140324

REACTIONS (3)
  - Investigation [Unknown]
  - Aphonia [Unknown]
  - Asthenia [Unknown]

NARRATIVE: CASE EVENT DATE: 20140702
